FAERS Safety Report 4776237-9 (Version None)
Quarter: 2005Q3

REPORT INFORMATION
  Report Type: 
  Country: None (occurrence: None)
  Receive Date: 20050914
  Receipt Date: 20050211
  Transmission Date: 20060218
  Serious: Yes (Other)
  Sender: FDA-Public Use
  Company Number: 163-20785-05020408

PATIENT

DRUGS (9)
  1. THALOMID [Suspect]
     Indication: NON-SMALL CELL LUNG CANCER
     Dosage: ORAL
     Route: 048
  2. KLONOPIN [Suspect]
  3. NEURONTIN [Suspect]
  4. OXYCONTIN [Suspect]
  5. OXYCODONE [Suspect]
  6. PAXIL [Suspect]
  7. CARBOPLATIN [Suspect]
     Indication: NON-SMALL CELL LUNG CANCER
  8. PACLITAXEL [Suspect]
     Indication: NON-SMALL CELL LUNG CANCER
  9. RADIOTHERAPY [Concomitant]
     Indication: NON-SMALL CELL LUNG CANCER

REACTIONS (1)
  - MUSCULAR WEAKNESS [None]
